FAERS Safety Report 5672784-6 (Version None)
Quarter: 2008Q1

REPORT INFORMATION
  Report Type: 
  Country: None (occurrence: None)
  Receive Date: 20080319
  Receipt Date: 20070326
  Transmission Date: 20080703
  Serious: No
  Sender: FDA-Public Use
  Company Number: US-KINGPHARMUSA00001-K200700365

PATIENT

DRUGS (3)
  1. ALTACE [Suspect]
     Indication: HYPERTENSION
     Dosage: 5 MG, UNK
     Dates: start: 20020101
  2. DIABETES MEDICATIONS(NOS) [Concomitant]
  3. CHOLESTEROL MEDICATION (NOS) [Concomitant]

REACTIONS (1)
  - ALOPECIA [None]
